FAERS Safety Report 20955371 (Version 1)
Quarter: 2022Q2

REPORT INFORMATION
  Report Type: Spontaneous
  Country: SA (occurrence: SA)
  Receive Date: 20220614
  Receipt Date: 20220614
  Transmission Date: 20220721
  Serious: Yes (Death, Life-Threatening, Hospitalization, Other)
  Sender: FDA-Public Use
  Company Number: SA-ALVOGEN-2022-ALVOGEN-120517

PATIENT
  Age: 48 Year
  Sex: Female

DRUGS (3)
  1. DOXORUBICIN [Suspect]
     Active Substance: DOXORUBICIN
     Indication: Breast cancer
     Route: 042
  2. CYCLOPHOSPHAMIDE [Suspect]
     Active Substance: CYCLOPHOSPHAMIDE
     Indication: Breast cancer
     Route: 042
  3. ENTECAVIR [Concomitant]
     Active Substance: ENTECAVIR
     Indication: Prophylaxis
     Route: 048

REACTIONS (3)
  - Acute hepatic failure [Fatal]
  - Brain oedema [Fatal]
  - Hepatic encephalopathy [Fatal]
